FAERS Safety Report 12302197 (Version 1)
Quarter: 2016Q2

REPORT INFORMATION
  Report Type: Spontaneous
  Country: US (occurrence: US)
  Receive Date: 20160425
  Receipt Date: 20160425
  Transmission Date: 20160815
  Serious: Yes (Other)
  Sender: FDA-Public Use
  Company Number: US-SA-2016SA078452

PATIENT
  Age: 66 Year
  Sex: Female

DRUGS (3)
  1. HUMALOG [Concomitant]
     Active Substance: INSULIN LISPRO
  2. LANTUS SOLOSTAR [Suspect]
     Active Substance: INSULIN GLARGINE
     Indication: DIABETES MELLITUS
     Dosage: DOSE:5 UNIT(S)
     Route: 065
     Dates: end: 201604
  3. SOLOSTAR [Concomitant]
     Active Substance: DEVICE
     Dates: end: 201604

REACTIONS (2)
  - Drug dose omission [Unknown]
  - Hip fracture [Unknown]

NARRATIVE: CASE EVENT DATE: 201604
